FAERS Safety Report 24308773 (Version 1)
Quarter: 2024Q3

REPORT INFORMATION
  Report Type: Spontaneous
  Country: SE (occurrence: SE)
  Receive Date: 20240911
  Receipt Date: 20240911
  Transmission Date: 20241017
  Serious: Yes (Hospitalization)
  Sender: PURDUE
  Company Number: None

PATIENT
  Age: 44 Year
  Sex: Female

DRUGS (1)
  1. OXYCODONE HYDROCHLORIDE [Suspect]
     Active Substance: OXYCODONE HYDROCHLORIDE
     Indication: Product used for unknown indication
     Dosage: 20 PIECES OF 10 MG OXYCODONE
     Route: 065
     Dates: start: 20240820, end: 20240820

REACTIONS (6)
  - Toxicity to various agents [Unknown]
  - Intentional overdose [Unknown]
  - Psychomotor hyperactivity [Unknown]
  - Miosis [Unknown]
  - Speech disorder [Unknown]
  - Suicide attempt [Unknown]

NARRATIVE: CASE EVENT DATE: 20240820
